FAERS Safety Report 14381966 (Version 1)
Quarter: 2018Q1

REPORT INFORMATION
  Report Type: Spontaneous
  Country: US (occurrence: US)
  Receive Date: 20180111
  Receipt Date: 20180111
  Transmission Date: 20180509
  Serious: Yes (Other)
  Sender: FDA-Public Use
  Company Number: None

PATIENT
  Age: 52 Year
  Sex: Female
  Weight: 99.45 kg

DRUGS (8)
  1. IBUPROFEN. [Concomitant]
     Active Substance: IBUPROFEN
  2. TURMERIC [Concomitant]
     Active Substance: HERBALS\TURMERIC
  3. GARLIC. [Concomitant]
     Active Substance: GARLIC
  4. NATURE MADE FISH OIL 1200MG, 360MG OMEGA NATURE MADE NUITRITIONAL PRODUCT [Concomitant]
     Active Substance: FISH OIL\OMEGA-3 FATTY ACIDS
  5. HDROCODONE [Concomitant]
  6. TIZADINE [Concomitant]
     Active Substance: TIZANIDINE HYDROCHLORIDE
  7. ACETAMINOPHEN. [Concomitant]
     Active Substance: ACETAMINOPHEN
  8. FLOUXETINE 20MG [Suspect]
     Active Substance: FLUOXETINE HYDROCHLORIDE
     Indication: DEPRESSION
     Dosage: ?          QUANTITY:30 CAPSULE(S);?
     Route: 048
     Dates: start: 20171003, end: 20171201

REACTIONS (8)
  - Swelling [None]
  - Pain [None]
  - Nail disorder [None]
  - Depression [None]
  - Pain in extremity [None]
  - Rash [None]
  - Neck mass [None]
  - Blood cholesterol increased [None]

NARRATIVE: CASE EVENT DATE: 20171115
